FAERS Safety Report 21412825 (Version 1)
Quarter: 2022Q4

REPORT INFORMATION
  Report Type: Spontaneous
  Country: US (occurrence: US)
  Receive Date: 20221005
  Receipt Date: 20221005
  Transmission Date: 20230113
  Serious: No
  Sender: FDA-Public Use
  Company Number: US-ELI_LILLY_AND_COMPANY-US202209009310

PATIENT
  Age: 64 Year
  Sex: Female

DRUGS (2)
  1. BEBTELOVIMAB [Suspect]
     Active Substance: BEBTELOVIMAB
     Indication: COVID-19
     Dosage: UNK, UNKNOWN
     Dates: start: 20220831, end: 20220831
  2. BEBTELOVIMAB [Suspect]
     Active Substance: BEBTELOVIMAB
     Dosage: UNK, UNKNOWN
     Route: 065
     Dates: start: 20220831, end: 20220831

REACTIONS (1)
  - Nasopharyngitis [Not Recovered/Not Resolved]

NARRATIVE: CASE EVENT DATE: 20220902
